FAERS Safety Report 15112337 (Version 2)
Quarter: 2019Q2

REPORT INFORMATION
  Report Type: Report from Study
  Country: ES (occurrence: ES)
  Receive Date: 20180705
  Receipt Date: 20190528
  Transmission Date: 20190711
  Serious: Yes (Hospitalization)
  Sender: FDA-Public Use
  Company Number: ES-ELI_LILLY_AND_COMPANY-ES201806014353

PATIENT
  Age: 49 Year
  Sex: Male

DRUGS (4)
  1. DULOXETINE HYDROCHLORIDE. [Suspect]
     Active Substance: DULOXETINE HYDROCHLORIDE
     Indication: NEURALGIA
     Dosage: 60 MG, UNKNOWN
     Route: 048
  2. LORAZEPAM. [Concomitant]
     Active Substance: LORAZEPAM
     Indication: INSOMNIA
     Dosage: 1 MG, UNKNOWN
     Route: 048
  3. TARGIN [Interacting]
     Active Substance: NALOXONE HYDROCHLORIDE\OXYCODONE HYDROCHLORIDE
     Indication: NEURALGIA
     Dosage: 120 MG, UNKNOWN
     Route: 048
     Dates: start: 20160218, end: 20160223
  4. SINOGAN                            /00038602/ [Interacting]
     Active Substance: LEVOMEPROMAZINE MALEATE
     Indication: ANXIETY
     Dosage: 37.5 MG, UNKNOWN
     Route: 030
     Dates: start: 20160217, end: 20160223

REACTIONS (4)
  - Dysphoria [Recovered/Resolved]
  - Off label use [Unknown]
  - Hallucination [Recovered/Resolved]
  - Drug interaction [Unknown]

NARRATIVE: CASE EVENT DATE: 20160220
